FAERS Safety Report 16719984 (Version 5)
Quarter: 2022Q2

REPORT INFORMATION
  Report Type: Spontaneous
  Country: US (occurrence: US)
  Receive Date: 20190820
  Receipt Date: 20220425
  Transmission Date: 20220721
  Serious: No
  Sender: FDA-Public Use
  Company Number: US-PFIZER INC-2019354791

PATIENT
  Age: 65 Year
  Sex: Female
  Weight: 96.62 kg

DRUGS (2)
  1. LYRICA [Suspect]
     Active Substance: PREGABALIN
     Indication: Nerve injury
     Dosage: 150 MG, 3X/DAY
     Route: 048
  2. LYRICA [Suspect]
     Active Substance: PREGABALIN
     Indication: Headache
     Dosage: 200 MG, 3X/DAY (1 CAPSULE (200 MG TOTAL) BY MOUTH 3 (THREE) TIMES A DAY)
     Route: 048

REACTIONS (4)
  - Off label use [Unknown]
  - Pain [Unknown]
  - Fatigue [Unknown]
  - Anxiety [Unknown]
